FAERS Safety Report 4416275-9 (Version None)
Quarter: 2004Q3

REPORT INFORMATION
  Report Type: 
  Country: None (occurrence: None)
  Receive Date: 20040803
  Receipt Date: 20040726
  Transmission Date: 20050211
  Serious: Yes (Other)
  Sender: FDA-Public Use
  Company Number: VISP-PR-0407S-0259

PATIENT
  Sex: Male

DRUGS (1)
  1. VISIPAQUE [Suspect]
     Dosage: SINGLE DOSE, I.A.
     Dates: start: 20040722, end: 20040722

REACTIONS (1)
  - PANCREATITIS [None]
